FAERS Safety Report 22080407 (Version 1)
Quarter: 2023Q1

REPORT INFORMATION
  Report Type: Report from Study
  Country: GB (occurrence: GB)
  Receive Date: 20230309
  Receipt Date: 20230309
  Transmission Date: 20230418
  Serious: Yes (Other)
  Sender: FDA-Public Use
  Company Number: GB-IPSEN Group, Research and Development-2023-05415

PATIENT
  Sex: Male

DRUGS (1)
  1. LANREOTIDE ACETATE [Suspect]
     Active Substance: LANREOTIDE ACETATE
     Indication: Neuroendocrine tumour
     Dosage: SOMATULINE AUTOGEL SOLUTION FOR INJECTION PRE-FILLED SYRINGE EVERY 21 DAYS
     Route: 058

REACTIONS (2)
  - Metastases to bone [Unknown]
  - Off label use [Unknown]
